FAERS Safety Report 6633200-0 (Version None)
Quarter: 2010Q1

REPORT INFORMATION
  Report Type: 
  Country: None (occurrence: None)
  Receive Date: 20100312
  Receipt Date: 20100308
  Transmission Date: 20100710
  Serious: Yes (Death, Other)
  Sender: FDA-Public Use
  Company Number: PHHY2010JP01813

PATIENT
  Sex: Male
  Weight: 65 kg

DRUGS (4)
  1. GLEEVEC [Suspect]
     Indication: GASTROINTESTINAL STROMAL TUMOUR
     Dosage: 400 MG DAILY
     Route: 048
     Dates: start: 20100104, end: 20100111
  2. PROTECADIN [Concomitant]
     Indication: GASTROINTESTINAL EROSION
     Dosage: 20 MG, UNK
     Route: 048
     Dates: start: 20091211, end: 20100113
  3. GASTROM [Concomitant]
     Indication: GASTROINTESTINAL EROSION
     Dosage: 3 G, UNK
     Route: 048
     Dates: start: 20091211, end: 20100113
  4. SOSEGON [Concomitant]
     Dosage: 15 MG, UNK
     Route: 030

REACTIONS (13)
  - ABDOMINAL DISCOMFORT [None]
  - ALANINE AMINOTRANSFERASE INCREASED [None]
  - ASCITES [None]
  - ASPARTATE AMINOTRANSFERASE INCREASED [None]
  - BACK PAIN [None]
  - BLOOD GLUCOSE INCREASED [None]
  - BLOOD LACTATE DEHYDROGENASE INCREASED [None]
  - BLOOD PRESSURE DECREASED [None]
  - COSTOVERTEBRAL ANGLE TENDERNESS [None]
  - LOSS OF CONSCIOUSNESS [None]
  - PLATELET COUNT DECREASED [None]
  - RETROPERITONEAL HAEMORRHAGE [None]
  - TUMOUR HAEMORRHAGE [None]
